FAERS Safety Report 21733683 (Version 1)
Quarter: 2022Q4

REPORT INFORMATION
  Report Type: Spontaneous
  Country: US (occurrence: None)
  Receive Date: 20221215
  Receipt Date: 20221215
  Transmission Date: 20230113
  Serious: Yes (Other)
  Sender: FDA-Public Use
  Company Number: None

PATIENT
  Age: 26 Year
  Sex: Female
  Weight: 72 kg

DRUGS (1)
  1. METHYLPHENIDATE HYDROCHLORIDE [Suspect]
     Active Substance: METHYLPHENIDATE HYDROCHLORIDE
     Indication: Attention deficit hyperactivity disorder
     Dates: start: 20221130, end: 20221206

REACTIONS (5)
  - Product substitution issue [None]
  - Sluggishness [None]
  - Disorientation [None]
  - Emotional disorder [None]
  - Therapeutic product effect decreased [None]

NARRATIVE: CASE EVENT DATE: 20221201
